FAERS Safety Report 5133016-0 (Version None)
Quarter: 2006Q4

REPORT INFORMATION
  Report Type: 
  Country: None (occurrence: None)
  Receive Date: 20061017
  Receipt Date: 20061010
  Transmission Date: 20070319
  Serious: Yes (Other)
  Sender: FDA-Public Use
  Company Number: RB-3469-2006

PATIENT
  Age: 32 Year
  Sex: Male

DRUGS (1)
  1. SUBUTEX [Suspect]
     Indication: DRUG USE FOR UNKNOWN INDICATION
     Dosage: 8 MG QD, 10 MG X/DAY, ORAL, ORAL
     Route: 060
     Dates: end: 20041101

REACTIONS (1)
  - GLAUCOMA [None]
